FAERS Safety Report 7415102-5 (Version None)
Quarter: 2011Q2

REPORT INFORMATION
  Report Type: 
  Country: None (occurrence: None)
  Receive Date: 20110414
  Receipt Date: 20110413
  Transmission Date: 20111010
  Serious: Yes (Hospitalization)
  Sender: FDA-Public Use
  Company Number: CA-ROCHE-769152

PATIENT
  Sex: Male
  Weight: 72 kg

DRUGS (13)
  1. STEMETIL [Concomitant]
     Dates: start: 20081015
  2. ZOFRAN [Concomitant]
     Dates: start: 20081015
  3. IMODIUM [Concomitant]
     Dates: start: 20090613
  4. PARIET [Concomitant]
     Dates: start: 20080610
  5. PEPCID [Concomitant]
     Dates: start: 20101227
  6. EMEND [Concomitant]
     Dates: start: 20081015
  7. FRAGMIN [Concomitant]
     Dates: start: 20081103
  8. OXALIPLATIN [Suspect]
     Route: 042
     Dates: start: 20110302
  9. PANTOLOC [Concomitant]
     Dates: start: 20101227
  10. SINGULAIR [Concomitant]
     Dates: start: 20081110
  11. BEVACIZUMAB [Suspect]
     Route: 042
     Dates: start: 20110302
  12. IRINOTECAN [Suspect]
     Route: 042
     Dates: start: 20110302
  13. CAPECITABINE [Suspect]
     Route: 048
     Dates: start: 20110304

REACTIONS (1)
  - NEUTROPENIA [None]
